FAERS Safety Report 9257524 (Version 1)
Quarter: 2013Q2

REPORT INFORMATION
  Report Type: Spontaneous
  Country: US (occurrence: US)
  Receive Date: 20130426
  Receipt Date: 20130426
  Transmission Date: 20140414
  Serious: No
  Sender: FDA-Public Use
  Company Number: US-BAYER-2013-045964

PATIENT
  Age: 33 Year
  Sex: Female

DRUGS (5)
  1. BEYAZ [Suspect]
     Indication: PREMENSTRUAL DYSPHORIC DISORDER
     Dosage: UNK
     Dates: start: 201212
  2. PORTIA-28 [Suspect]
     Indication: PREMENSTRUAL DYSPHORIC DISORDER
  3. SEASONIQUE [Suspect]
     Indication: PREMENSTRUAL DYSPHORIC DISORDER
     Dosage: UNK
     Dates: start: 201303
  4. WELLBATRIN [Concomitant]
     Indication: DEPRESSION
     Dosage: 300 MG, ONCE
     Route: 048
  5. MVI [VITAMINS NOS] [Concomitant]
     Dosage: UNK

REACTIONS (6)
  - Drug interaction [None]
  - Ovulation disorder [None]
  - Menorrhagia [None]
  - Night sweats [None]
  - Nightmare [None]
  - Anger [None]
